FAERS Safety Report 9643584 (Version 1)
Quarter: 2013Q4

REPORT INFORMATION
  Report Type: Spontaneous
  Country: BR (occurrence: BR)
  Receive Date: 20131024
  Receipt Date: 20131024
  Transmission Date: 20140711
  Serious: Yes (Hospitalization)
  Sender: FDA-Public Use
  Company Number: BR-GLAXOSMITHKLINE-A1046494A

PATIENT
  Age: 3 Year
  Sex: Male
  Weight: 13 kg

DRUGS (7)
  1. AMOXIL [Suspect]
     Indication: SINUSITIS
     Dosage: 4ML TWICE PER DAY
     Route: 048
     Dates: start: 20130907, end: 20130911
  2. ZINNAT [Suspect]
     Indication: SINUSITIS
     Dosage: 3.5ML TWICE PER DAY
     Route: 048
     Dates: start: 20130911, end: 20130916
  3. ALLEGRA [Concomitant]
  4. NOVALGINE [Concomitant]
  5. HYDROXYZINE HYDROCHLORIDE [Concomitant]
  6. B COMPLEX [Concomitant]
  7. SODIUM CHLORIDE [Concomitant]

REACTIONS (3)
  - Pyrexia [Not Recovered/Not Resolved]
  - Skin disorder [Unknown]
  - Platelet count decreased [Recovering/Resolving]
